FAERS Safety Report 16332593 (Version 1)
Quarter: 2019Q2

REPORT INFORMATION
  Report Type: Spontaneous
  Country: US (occurrence: US)
  Receive Date: 20190413
  Receipt Date: 20190413
  Transmission Date: 20190711
  Serious: No
  Sender: FDA-Public Use
  Company Number: None

PATIENT
  Age: 13 Year
  Sex: Female

DRUGS (1)
  1. SPRYCEL [Suspect]
     Active Substance: DASATINIB
     Dates: start: 201210

REACTIONS (4)
  - Headache [None]
  - Arthralgia [None]
  - Therapy change [None]
  - Loss of personal independence in daily activities [None]

NARRATIVE: CASE EVENT DATE: 20190413
